FAERS Safety Report 16103758 (Version 1)
Quarter: 2019Q1

REPORT INFORMATION
  Report Type: Spontaneous
  Country: IT (occurrence: IT)
  Receive Date: 20190322
  Receipt Date: 20190322
  Transmission Date: 20190418
  Serious: Yes (Other)
  Sender: FDA-Public Use
  Company Number: IT-SA-2019SA072558

PATIENT
  Age: 91 Year
  Sex: Female

DRUGS (3)
  1. ACETYLSALICYLATE LYSINE [Interacting]
     Active Substance: ASPIRIN DL-LYSINE
     Indication: CEREBROVASCULAR ACCIDENT
     Dosage: 250 MG, QD
     Route: 042
     Dates: start: 20190222, end: 20190303
  2. PANTORC [Concomitant]
     Active Substance: PANTOPRAZOLE SODIUM
  3. ENOXAPARIN SODIUM. [Suspect]
     Active Substance: ENOXAPARIN SODIUM
     Indication: CEREBROVASCULAR ACCIDENT
     Dosage: 4000 KIU, QD
     Route: 058
     Dates: start: 20190224, end: 20190303

REACTIONS (3)
  - Melaena [Unknown]
  - Haematuria [Unknown]
  - Drug interaction [Unknown]

NARRATIVE: CASE EVENT DATE: 20190304
